FAERS Safety Report 9924027 (Version 1)
Quarter: 2014Q1

REPORT INFORMATION
  Report Type: Report from Study
  Country: DE (occurrence: DE)
  Receive Date: 20140225
  Receipt Date: 20140225
  Transmission Date: 20141002
  Serious: Yes (Other)
  Sender: FDA-Public Use
  Company Number: DE-ABBVIE-14P-062-1204390-00

PATIENT
  Age: 48 Year
  Sex: Male

DRUGS (4)
  1. KALETRA [Suspect]
     Indication: HIV INFECTION
     Dates: start: 20011113
  2. VIREAD [Concomitant]
     Indication: PRODUCT USED FOR UNKNOWN INDICATION
  3. EPIVIR [Concomitant]
     Indication: PRODUCT USED FOR UNKNOWN INDICATION
  4. VIRAMUNE [Concomitant]
     Indication: PRODUCT USED FOR UNKNOWN INDICATION

REACTIONS (1)
  - Encephalopathy [Not Recovered/Not Resolved]
